FAERS Safety Report 12397423 (Version 1)
Quarter: 2016Q2

REPORT INFORMATION
  Report Type: Spontaneous
  Country: CN (occurrence: CN)
  Receive Date: 20160524
  Receipt Date: 20160524
  Transmission Date: 20160815
  Serious: Yes (Hospitalization)
  Sender: FDA-Public Use
  Company Number: CN-GLAXOSMITHKLINE-CN2016GSK072912

PATIENT
  Age: 63 Year
  Sex: Male
  Weight: 44 kg

DRUGS (3)
  1. SERETIDE [Suspect]
     Active Substance: FLUTICASONE PROPIONATE\SALMETEROL XINAFOATE
     Dosage: USED TILL 56 SPRAY LEFT
     Route: 055
     Dates: start: 201605
  2. SERETIDE [Suspect]
     Active Substance: FLUTICASONE PROPIONATE\SALMETEROL XINAFOATE
     Indication: EMPHYSEMA
     Dosage: 1 SPRAY, BID
     Route: 055
     Dates: start: 2014
  3. SERETIDE [Suspect]
     Active Substance: FLUTICASONE PROPIONATE\SALMETEROL XINAFOATE
     Dosage: UNK
     Route: 055
     Dates: start: 201604

REACTIONS (2)
  - Drug ineffective [Not Recovered/Not Resolved]
  - Condition aggravated [Unknown]

NARRATIVE: CASE EVENT DATE: 201604
